FAERS Safety Report 17774738 (Version 1)
Quarter: 2020Q2

REPORT INFORMATION
  Report Type: Spontaneous
  Country: TW (occurrence: TW)
  Receive Date: 20200513
  Receipt Date: 20200513
  Transmission Date: 20200714
  Serious: Yes (Hospitalization, Other)
  Sender: FDA-Public Use
  Company Number: TW-GLAXOSMITHKLINE-TW2020GSK077913

PATIENT
  Age: 42 Year
  Sex: Male

DRUGS (4)
  1. BUPROPION. [Suspect]
     Active Substance: BUPROPION
     Indication: PRODUCT USED FOR UNKNOWN INDICATION
     Dosage: 150 MG (45 TABLETS)
     Route: 048
  2. FLUMAZENIL. [Suspect]
     Active Substance: FLUMAZENIL
     Indication: INTENTIONAL OVERDOSE
     Dosage: 0.5 MG
  3. AMITRIPTYLINE [Suspect]
     Active Substance: AMITRIPTYLINE
     Indication: PRODUCT USED FOR UNKNOWN INDICATION
     Dosage: 25 MG (30 TABLETS)
     Route: 048
  4. CLONAZEPAM. [Suspect]
     Active Substance: CLONAZEPAM
     Indication: PRODUCT USED FOR UNKNOWN INDICATION
     Dosage: 2 MG (400 TABLETS)
     Route: 048

REACTIONS (18)
  - Toxicity to various agents [Recovered/Resolved]
  - Tachycardia [Recovered/Resolved]
  - Altered state of consciousness [Recovered/Resolved]
  - Somnolence [Recovered/Resolved]
  - Ventricular tachycardia [Recovered/Resolved]
  - Electrocardiogram QRS complex prolonged [Recovered/Resolved]
  - Intentional overdose [Recovered/Resolved]
  - Influenza [Recovered/Resolved]
  - Electrocardiogram QT prolonged [Recovered/Resolved]
  - Rales [Recovered/Resolved]
  - QRS axis abnormal [Recovered/Resolved]
  - Conduction disorder [Recovered/Resolved]
  - Hypotension [Recovered/Resolved]
  - Seizure [Recovered/Resolved]
  - Coma [Recovered/Resolved]
  - Pneumonia [Recovered/Resolved]
  - Poisoning deliberate [Recovered/Resolved]
  - Pyrexia [Recovered/Resolved]
